FAERS Safety Report 17688724 (Version 1)
Quarter: 2020Q2

REPORT INFORMATION
  Report Type: Spontaneous
  Country: US (occurrence: US)
  Receive Date: 20200421
  Receipt Date: 20200421
  Transmission Date: 20200714
  Serious: Yes (Hospitalization)
  Sender: FDA-Public Use
  Company Number: None

PATIENT
  Age: 46 Year
  Sex: Male

DRUGS (11)
  1. LIPITOR [Concomitant]
     Active Substance: ATORVASTATIN CALCIUM
  2. CYCLOSPORINE. [Suspect]
     Active Substance: CYCLOSPORINE
     Indication: DRUG THERAPY
     Route: 048
     Dates: start: 20200311
  3. ASPIRIN. [Concomitant]
     Active Substance: ASPIRIN
  4. PLAVIX [Concomitant]
     Active Substance: CLOPIDOGREL BISULFATE
  5. TESTOST [Concomitant]
  6. CYCLOSPORINE. [Suspect]
     Active Substance: CYCLOSPORINE
     Indication: DRUG THERAPY
     Route: 048
     Dates: start: 20200311
  7. LISINOPRIL. [Concomitant]
     Active Substance: LISINOPRIL
  8. XANAX [Concomitant]
     Active Substance: ALPRAZOLAM
  9. ENVARSUS XR [Suspect]
     Active Substance: TACROLIMUS
  10. AMBIEN [Concomitant]
     Active Substance: ZOLPIDEM TARTRATE
  11. MYFORTIC [Concomitant]
     Active Substance: MYCOPHENOLATE SODIUM

REACTIONS (7)
  - Influenza [None]
  - Blood creatine increased [None]
  - Blood urea increased [None]
  - Myocardial infarction [None]
  - Muscle spasms [None]
  - Asthenia [None]
  - Decreased appetite [None]

NARRATIVE: CASE EVENT DATE: 20200409
